FAERS Safety Report 16145032 (Version 3)
Quarter: 2019Q2

REPORT INFORMATION
  Report Type: Spontaneous
  Country: US (occurrence: US)
  Receive Date: 20190402
  Receipt Date: 20190424
  Transmission Date: 20190711
  Serious: Yes (Other)
  Sender: FDA-Public Use
  Company Number: US-009507513-1904USA000301

PATIENT
  Sex: Female

DRUGS (4)
  1. TESSALON [Concomitant]
     Active Substance: BENZONATATE
     Dosage: DOSE: 100 (UNIT UNSPECIFIED), FREQUENCY: PRN
     Route: 048
  2. VITAMIN D (UNSPECIFIED) [Concomitant]
     Active Substance: VITAMIN D NOS
     Dosage: DOSE: 1000 (UNIT UNSPECIFIED), FREQUENCY: DAILY (QD)
     Route: 048
     Dates: start: 2012
  3. WELLBUTRIN [Concomitant]
     Active Substance: BUPROPION HYDROCHLORIDE
     Dosage: DOSE: 150 (UNIT UNSPECIFIED), FREQUENCY: DAILY (QD)
     Route: 048
     Dates: start: 2015
  4. KEYTRUDA [Suspect]
     Active Substance: PEMBROLIZUMAB
     Indication: NON-SMALL CELL LUNG CANCER
     Dosage: UNK UNK, FREQUENCY:CYCLICAL
     Route: 042
     Dates: start: 20150503

REACTIONS (1)
  - Pemphigoid [Not Recovered/Not Resolved]

NARRATIVE: CASE EVENT DATE: 201812
